FAERS Safety Report 4286424-4 (Version None)
Quarter: 2004Q1

REPORT INFORMATION
  Report Type: 
  Country: None (occurrence: None)
  Receive Date: 20040204
  Receipt Date: 20040126
  Transmission Date: 20041129
  Serious: Yes (Other)
  Sender: FDA-Public Use
  Company Number: 2004-01-1625

PATIENT
  Age: 44 Year
  Sex: Male

DRUGS (2)
  1. REBETOL [Suspect]
     Indication: HEPATITIS C
     Dosage: 1200 MG QD ORAL
     Route: 048
     Dates: start: 20030101
  2. PEGASYS [Suspect]
     Indication: HEPATITIS C
     Dosage: 180 MCG QWK
     Dates: start: 20030101

REACTIONS (11)
  - AGGRESSION [None]
  - ANGER [None]
  - ARTHRALGIA [None]
  - CONFUSIONAL STATE [None]
  - DEPRESSION [None]
  - EAR PAIN [None]
  - FACIAL PALSY [None]
  - HYPOACUSIS [None]
  - LOSS OF CONSCIOUSNESS [None]
  - NECK PAIN [None]
  - WEIGHT DECREASED [None]
